FAERS Safety Report 18567775 (Version 2)
Quarter: 2021Q1

REPORT INFORMATION
  Report Type: Report from Study
  Country: None (occurrence: JP)
  Receive Date: 20201202
  Receipt Date: 20210120
  Transmission Date: 20210419
  Serious: Yes (Hospitalization)
  Sender: FDA-Public Use
  Company Number: JP-ABBVIE-18S-087-2462494-00

PATIENT
  Age: 63 Year
  Sex: Female
  Weight: 46 kg

DRUGS (26)
  1. DUODOPA [Suspect]
     Active Substance: CARBIDOPA\LEVODOPA
     Indication: PARKINSON^S DISEASE
     Dosage: MD: 7.0 ML?CD: 2.4 ML/HR X 14 HRS?ED: 1.0 ML/UNIT X 1
     Route: 050
     Dates: start: 20180712, end: 20180828
  2. DUODOPA [Suspect]
     Active Substance: CARBIDOPA\LEVODOPA
     Dosage: MD: 9.3 ML?CD: 2.0 ML/HR X 14 HRS?ED: 1.0 ML/UNIT X 1
     Route: 050
     Dates: start: 20180829, end: 20180906
  3. DUODOPA [Suspect]
     Active Substance: CARBIDOPA\LEVODOPA
     Dosage: MD: 9.3 ML?CD: 1.5 ML/HR X 14 HRS?ED: 1.0 ML/UNIT X 1
     Route: 050
     Dates: start: 20180906, end: 20190722
  4. DUODOPA [Suspect]
     Active Substance: CARBIDOPA\LEVODOPA
     Dosage: MD: 7.0 ML?CD: 2.0 ML/HR X 14 HRS?ED: 1.0 ML/UNIT X 1
     Route: 050
     Dates: start: 20190725, end: 20190727
  5. AMANTADINE HYDROCHLORIDE. [Concomitant]
     Active Substance: AMANTADINE HYDROCHLORIDE
     Indication: PARKINSON^S DISEASE
     Route: 048
  6. MOSAPRIDE CITRATE [Concomitant]
     Active Substance: MOSAPRIDE CITRATE
     Indication: PRODUCT USED FOR UNKNOWN INDICATION
     Dosage: HYDRATE
     Route: 048
  7. LORAZEPAM. [Concomitant]
     Active Substance: LORAZEPAM
     Indication: PRODUCT USED FOR UNKNOWN INDICATION
     Route: 048
     Dates: start: 20190412, end: 20190719
  8. DUODOPA [Suspect]
     Active Substance: CARBIDOPA\LEVODOPA
     Dosage: MD: 7.0 ML?CD: 2.5 ML/HR X 14 HRS?ED: 1.0 ML/UNIT X 1
     Route: 050
     Dates: start: 20200717
  9. CARBIDOPA HYDRATE/ LEVODOPA [Concomitant]
     Indication: PARKINSON^S DISEASE
     Route: 048
     Dates: start: 20180715, end: 20180718
  10. ROPINIROLE HYDROCHLORIDE. [Concomitant]
     Active Substance: ROPINIROLE HYDROCHLORIDE
     Indication: PARKINSON^S DISEASE
     Route: 048
     Dates: start: 20190723, end: 20191021
  11. DUODOPA [Suspect]
     Active Substance: CARBIDOPA\LEVODOPA
     Dosage: MD: 7.0 ML?CD: 2.3 ML/HR X 14 HRS?ED: 1.0 ML/UNIT X 1
     Route: 050
     Dates: start: 20200330, end: 20200716
  12. ROTIGOTINE [Concomitant]
     Active Substance: ROTIGOTINE
     Indication: PARKINSON^S DISEASE
     Route: 062
     Dates: end: 20181011
  13. ROTIGOTINE [Concomitant]
     Active Substance: ROTIGOTINE
     Route: 062
     Dates: start: 20190701
  14. CARBIDOPA HYDRATE/ LEVODOPA [Concomitant]
     Route: 048
     Dates: start: 20200106, end: 20200410
  15. TRIHEXYPHENIDYL HYDROCHLORIDE. [Concomitant]
     Active Substance: TRIHEXYPHENIDYL HYDROCHLORIDE
     Indication: PARKINSON^S DISEASE
     Route: 048
     Dates: start: 20181212, end: 20190115
  16. ESZOPICLONE. [Concomitant]
     Active Substance: ESZOPICLONE
     Indication: PARKINSON^S DISEASE
     Route: 048
     Dates: start: 20180827, end: 20190719
  17. DUODOPA [Suspect]
     Active Substance: CARBIDOPA\LEVODOPA
     Dosage: MD: 9.3 ML?CD: 2.2 ML/HR X 14 HRS?ED: 1.0 ML/UNIT X 1
     Route: 050
     Dates: start: 20180828, end: 20180829
  18. DUODOPA [Suspect]
     Active Substance: CARBIDOPA\LEVODOPA
     Dosage: MD: 7.0 ML?CD: 2.3 ML/HR X 14 HRS?ED: 1.0 ML/UNIT X 1
     Route: 050
     Dates: start: 20190728, end: 20200329
  19. ROTIGOTINE [Concomitant]
     Active Substance: ROTIGOTINE
     Route: 062
     Dates: start: 20181012, end: 20190630
  20. LUBIPROSTONE [Concomitant]
     Active Substance: LUBIPROSTONE
     Indication: PRODUCT USED FOR UNKNOWN INDICATION
     Route: 048
  21. FLUNITRAZEPAM [Concomitant]
     Active Substance: FLUNITRAZEPAM
     Indication: PRODUCT USED FOR UNKNOWN INDICATION
     Route: 048
     Dates: start: 20190718, end: 20190729
  22. WYPAX [Concomitant]
     Active Substance: LORAZEPAM
     Indication: PRODUCT USED FOR UNKNOWN INDICATION
     Route: 048
     Dates: start: 20190226, end: 20190422
  23. CLONAZEPAM. [Concomitant]
     Active Substance: CLONAZEPAM
     Indication: PRODUCT USED FOR UNKNOWN INDICATION
     Route: 048
  24. ETIZOLAM [Concomitant]
     Active Substance: ETIZOLAM
     Indication: PRODUCT USED FOR UNKNOWN INDICATION
     Route: 048
  25. DUODOPA [Suspect]
     Active Substance: CARBIDOPA\LEVODOPA
     Dosage: MD: 7.0 ML?CD: 1.7 ML/HR X 14 HRS?ED: 1.0 ML/UNIT X 1
     Route: 050
     Dates: start: 20190723, end: 20190724
  26. SENNOSIDES. [Concomitant]
     Active Substance: SENNOSIDES
     Indication: PRODUCT USED FOR UNKNOWN INDICATION
     Route: 048
     Dates: start: 20180827

REACTIONS (7)
  - Fall [Unknown]
  - Stoma site inflammation [Recovered/Resolved]
  - Dyskinesia [Unknown]
  - Stoma site inflammation [Recovered/Resolved]
  - Cellulitis [Recovered/Resolved]
  - Device issue [Unknown]
  - Stoma site pain [Unknown]

NARRATIVE: CASE EVENT DATE: 20180816
